FAERS Safety Report 7329196-9 (Version None)
Quarter: 2011Q1

REPORT INFORMATION
  Report Type: 
  Country: None (occurrence: None)
  Receive Date: 20110228
  Receipt Date: 20110228
  Transmission Date: 20110831
  Serious: Yes (Other)
  Sender: FDA-Public Use
  Company Number: None

PATIENT
  Age: 48 Year
  Sex: Male
  Weight: 91.173 kg

DRUGS (1)
  1. METRONIDAZOLE [Suspect]
     Indication: GASTROINTESTINAL INFECTION
     Dosage: 500 MG 3 BID PO
     Route: 048
     Dates: start: 20110221, end: 20110225

REACTIONS (4)
  - GASTROINTESTINAL ULCER [None]
  - JOINT STIFFNESS [None]
  - ABDOMINAL DISCOMFORT [None]
  - ARTHRALGIA [None]
